FAERS Safety Report 6654660-5 (Version None)
Quarter: 2010Q1

REPORT INFORMATION
  Report Type: 
  Country: None (occurrence: None)
  Receive Date: 20100326
  Receipt Date: 20100216
  Transmission Date: 20100710
  Serious: Yes (Life-Threatening, Hospitalization)
  Sender: FDA-Public Use
  Company Number: US-GENENTECH-278281

PATIENT
  Sex: Male
  Weight: 172 kg

DRUGS (21)
  1. XOLAIR [Suspect]
     Indication: ASTHMA
     Dosage: 300 UNK, Q2W
     Route: 058
     Dates: start: 20060823, end: 20090227
  2. AVELOX [Suspect]
     Indication: DRUG USE FOR UNKNOWN INDICATION
     Dosage: UNK MG, QD
  3. ADVAIR DISKUS 100/50 [Concomitant]
     Indication: ASTHMA
     Dosage: 50 A?G, BID
     Dates: start: 20050407
  4. ADVAIR DISKUS 100/50 [Concomitant]
     Dosage: 550 MG, QAM
  5. SINGULAIR [Concomitant]
     Indication: ASTHMA
     Dosage: 10 MG, QD
     Route: 048
     Dates: start: 20050407
  6. ALBUTEROL [Concomitant]
     Indication: ASTHMA
     Dosage: UNK
     Dates: start: 20050407
  7. SPIRIVA [Concomitant]
     Indication: ASTHMA
     Dosage: 18 A?G, QD
     Dates: start: 20050407
  8. XOPENEX [Concomitant]
     Indication: ASTHMA
     Dosage: 1.25 MG, PRN
     Dates: start: 20050407
  9. FLONASE [Concomitant]
     Indication: ASTHMA
     Dosage: UNK
     Dates: start: 20050407
  10. NASONEX [Concomitant]
     Indication: HYPERSENSITIVITY
     Dosage: 50 A?G, QD
     Route: 045
     Dates: start: 20050407
  11. ASTELIN [Concomitant]
     Indication: HYPERSENSITIVITY
     Dosage: 137 A?G, BID
     Route: 045
     Dates: start: 20050407
  12. ZYRTEC [Concomitant]
     Indication: HYPERSENSITIVITY
     Dosage: 10 MG, UNK
     Route: 048
     Dates: start: 20050407
  13. PREDNISONE [Concomitant]
     Indication: ASTHMA
     Dosage: 20 MG, UNK
     Route: 048
     Dates: start: 20050407
  14. PREDNISONE [Concomitant]
     Indication: HYPERSENSITIVITY
     Dosage: 1 TABLET, BID
     Dates: start: 20090209, end: 20090214
  15. PREDNISONE [Concomitant]
     Dosage: 20 MG, BID
     Route: 048
     Dates: start: 20100212, end: 20100218
  16. AUGMENTIN [Concomitant]
     Indication: DRUG USE FOR UNKNOWN INDICATION
     Dosage: 125 MG, BID
  17. EPIPEN [Concomitant]
     Indication: HYPERSENSITIVITY
     Dosage: UNK
     Dates: start: 20050407
  18. PROVENTIL [Concomitant]
     Indication: ASTHMA
     Dosage: UNK
     Dates: start: 20050407
  19. BENICAR [Concomitant]
     Indication: HYPERTENSION
     Dosage: 40 MG, QAM
     Route: 048
  20. CONCOMITANT DRUG [Concomitant]
     Indication: ASTHMA
     Dosage: UNK
  21. ASPIRIN [Concomitant]
     Indication: PROPHYLAXIS
     Dosage: 8 MG, QD
     Route: 048

REACTIONS (4)
  - ANAPHYLACTIC REACTION [None]
  - FLUSHING [None]
  - PRURITUS [None]
  - RESPIRATORY DISTRESS [None]
